FAERS Safety Report 8905721 (Version 1)
Quarter: 2012Q4

REPORT INFORMATION
  Report Type: 
  Country: DE (occurrence: DE)
  Receive Date: 20121113
  Receipt Date: 20121113
  Transmission Date: 20130627
  Serious: Yes (Congenital Anomaly, Other)
  Sender: FDA-Public Use
  Company Number: DE-MYLANLABS-2012S1022656

PATIENT
  Age: 0 Year
  Sex: Male
  Weight: 3.57 kg

DRUGS (3)
  1. CITALOPRAM [Suspect]
     Dosage: 60 [mg/d ]
     Route: 064
     Dates: end: 20111219
  2. VIGIL [Suspect]
     Dosage: 400 [mg/d ]
     Route: 064
     Dates: end: 20111219
  3. BETAMETHASONE [Concomitant]
     Indication: MATERNAL THERAPY TO ENHANCE FOETAL LUNG MATURITY
     Dosage: in gestational week 32
     Route: 064

REACTIONS (5)
  - Exposure during pregnancy [Recovered/Resolved]
  - Neonatal respiratory distress syndrome [Recovered/Resolved]
  - Drug withdrawal syndrome neonatal [Recovered/Resolved]
  - Patent ductus arteriosus [Unknown]
  - Atrial septal defect [Unknown]
